FAERS Safety Report 6600778-2 (Version None)
Quarter: 2010Q1

REPORT INFORMATION
  Report Type: 
  Country: None (occurrence: None)
  Receive Date: 20100225
  Receipt Date: 20100217
  Transmission Date: 20100710
  Serious: Yes (Hospitalization)
  Sender: FDA-Public Use
  Company Number: US-BIOGENIDEC-2010BI002044

PATIENT
  Age: 60 Year
  Sex: Male
  Weight: 42 kg

DRUGS (2)
  1. AVONEX [Suspect]
     Indication: MULTIPLE SCLEROSIS
     Route: 030
     Dates: start: 19960516, end: 20030830
  2. AVONEX [Suspect]
     Route: 030
     Dates: start: 20030830

REACTIONS (15)
  - ABASIA [None]
  - APHONIA [None]
  - ARTHRALGIA [None]
  - BLADDER CATHETERISATION [None]
  - COORDINATION ABNORMAL [None]
  - DECUBITUS ULCER [None]
  - DEMENTIA [None]
  - IMPLANT SITE INFECTION [None]
  - INFLUENZA LIKE ILLNESS [None]
  - INJURY ASSOCIATED WITH DEVICE [None]
  - LOSS OF CONTROL OF LEGS [None]
  - MULTIPLE SCLEROSIS [None]
  - MUSCLE SPASMS [None]
  - MUSCLE SPASTICITY [None]
  - PARANOIA [None]
